FAERS Safety Report 7722331-X (Version None)
Quarter: 2011Q3

REPORT INFORMATION
  Report Type: 
  Country: None (occurrence: None)
  Receive Date: 20110831
  Receipt Date: 20110826
  Transmission Date: 20111222
  Serious: Yes (Other)
  Sender: FDA-Public Use
  Company Number: CH-ABBOTT-11P-151-0849834-00

PATIENT
  Age: 51 Year
  Sex: Male

DRUGS (5)
  1. VIREAD [Suspect]
     Indication: HIV INFECTION
     Route: 048
     Dates: start: 20060829, end: 20110411
  2. ATAZANAVIR [Suspect]
     Indication: HIV INFECTION
     Route: 048
     Dates: start: 20060829, end: 20110411
  3. RALTEGRAVIR [Concomitant]
     Indication: HIV INFECTION
     Route: 048
     Dates: start: 20100201
  4. RITONAVIR [Suspect]
     Indication: HIV INFECTION
     Route: 048
     Dates: start: 19980318
  5. EFAVIRENZ [Concomitant]
     Indication: HIV INFECTION
     Route: 048
     Dates: start: 20060829, end: 20110411

REACTIONS (7)
  - HYPOPHOSPHATAEMIA [None]
  - GLYCOSURIA [None]
  - PROTEINURIA [None]
  - DIASTOLIC HYPERTENSION [None]
  - BLOOD CREATININE ABNORMAL [None]
  - BETA 2 MICROGLOBULIN INCREASED [None]
  - RENAL TUBULAR DISORDER [None]
